FAERS Safety Report 17733986 (Version 1)
Quarter: 2020Q2

REPORT INFORMATION
  Report Type: Spontaneous
  Country: US (occurrence: US)
  Receive Date: 20200501
  Receipt Date: 20200501
  Transmission Date: 20200714
  Serious: Yes (Death)
  Sender: FDA-Public Use
  Company Number: US-ASTRAZENECA-2020SE11623

PATIENT
  Age: 684 Day
  Sex: Male
  Weight: 14 kg

DRUGS (2)
  1. SYNAGIS [Suspect]
     Active Substance: PALIVIZUMAB
     Indication: BONE MARROW TRANSPLANT
     Route: 030
     Dates: start: 20191112
  2. SYNAGIS [Suspect]
     Active Substance: PALIVIZUMAB
     Indication: BONE MARROW TRANSPLANT
     Route: 030
     Dates: start: 20200121, end: 20200229

REACTIONS (1)
  - Human herpesvirus 6 infection [Fatal]

NARRATIVE: CASE EVENT DATE: 20200229
